FAERS Safety Report 4394186-5 (Version None)
Quarter: 2004Q3

REPORT INFORMATION
  Report Type: 
  Country: None (occurrence: None)
  Receive Date: 20040706
  Receipt Date: 20040622
  Transmission Date: 20050211
  Serious: Yes (Death, Hospitalization)
  Sender: FDA-Public Use
  Company Number: 04P-163-0264539-00

PATIENT
  Age: 72 Year
  Sex: Female

DRUGS (13)
  1. HUMIRA [Suspect]
     Indication: RHEUMATOID ARTHRITIS
     Dosage: 40 MG, 1 IN 2 WK, SUBCUTANEOUS
     Route: 058
     Dates: start: 20031001
  2. MIRTAZAPINE [Concomitant]
  3. CYCLOBENZAPRINE HYDROCHLORIDE [Concomitant]
  4. HYDROMORPHONE HYDROCHLORIDE [Concomitant]
  5. ACETAMINOPHEN [Concomitant]
  6. LANSOPRAZOLE [Concomitant]
  7. POTASSIUM [Concomitant]
  8. PREDNISONE [Concomitant]
  9. TOLECTIN [Concomitant]
  10. ALBUTEROL SULFATE [Concomitant]
  11. SERETIDE MITE [Concomitant]
  12. OXYGEN [Concomitant]
  13. FORMOTEROL FUMARATE [Concomitant]

REACTIONS (2)
  - CHRONIC OBSTRUCTIVE AIRWAYS DISEASE [None]
  - RESPIRATORY FAILURE [None]
